FAERS Safety Report 5022956-9 (Version None)
Quarter: 2006Q2

REPORT INFORMATION
  Report Type: 
  Country: None (occurrence: None)
  Receive Date: 20060426
  Receipt Date: 20060318
  Transmission Date: 20061013
  Serious: Yes (Other)
  Sender: FDA-Public Use
  Company Number: 2006038971

PATIENT
  Age: 49 Year
  Sex: Female
  Weight: 49.8957 kg

DRUGS (12)
  1. LYRICA [Suspect]
     Indication: BACK PAIN
     Dosage: 450 MG (150 MG, 3 IN 1 D), ORAL
     Route: 048
     Dates: start: 20051201
  2. LYRICA [Suspect]
     Indication: HYPERTENSION
     Dosage: 450 MG (150 MG, 3 IN 1 D), ORAL
     Route: 048
     Dates: start: 20051201
  3. LYRICA [Suspect]
     Indication: NECK PAIN
     Dosage: 450 MG (150 MG, 3 IN 1 D), ORAL
     Route: 048
     Dates: start: 20051201
  4. OXYCODONE (OXYCODONE) [Suspect]
     Indication: PAIN
     Dates: start: 20050101, end: 20060101
  5. DILAUDID [Suspect]
     Indication: PAIN
     Dates: start: 20050101, end: 20060101
  6. NORCO [Suspect]
     Indication: PAIN
     Dates: end: 20060101
  7. WELLBUTRIN [Concomitant]
  8. ALL OTHER THERAPEUTIC PRODUCTS (ALL OTHER THERAPEUTIC PRODUCTS) [Concomitant]
  9. SOMA [Concomitant]
  10. ZYRTEC-D 12 HOUR [Concomitant]
  11. ZELNORM [Concomitant]
  12. KLONOPIN [Concomitant]

REACTIONS (5)
  - ACTIVITIES OF DAILY LIVING IMPAIRED [None]
  - DRUG INTERACTION [None]
  - EUPHORIC MOOD [None]
  - HYPOAESTHESIA ORAL [None]
  - MALAISE [None]
